FAERS Safety Report 10203721 (Version 1)
Quarter: 2014Q2

REPORT INFORMATION
  Report Type: Spontaneous
  Country: US (occurrence: None)
  Receive Date: 20140523
  Receipt Date: 20140523
  Transmission Date: 20141212
  Serious: Yes (Hospitalization, Other)
  Sender: FDA-Public Use
  Company Number: ADR-2014-00864

PATIENT
  Age: 59 Year
  Sex: Male

DRUGS (26)
  1. BACLOFEN [Suspect]
     Indication: HICCUPS
     Dosage: SEE B.5.
  2. CYCLOBENZAPRINE [Suspect]
     Indication: HICCUPS
     Dosage: 5MG, 3 TIMES/DAY
  3. AMIODARONE [Suspect]
     Dosage: 200 MG ONCE/DAY?
  4. ASPIRIN [Suspect]
     Dosage: 81 MG ONCE/DAY
  5. CALCITRIOL [Suspect]
     Dosage: 0.25 MCG ONCE/DAY
  6. CALCIUM CARBONATE + VITAMIN D WITH CALCIUM [Suspect]
     Dosage: 500 MG?
  7. VITAMIN D [Suspect]
     Dosage: 400 MG TWICE/DAY?
  8. CLOBETASOL [Suspect]
     Dosage: 0.05% CREAM APPLIED TWICE/DAY?
  9. FUROSEMIDE [Suspect]
     Dosage: 20 MG TWICE/DAY
  10. INSULIN ASPARTATE [Suspect]
     Dosage: ACCORDING TO SLIDING SCALE ?
  11. HUMAN NPH INSULIN [Suspect]
     Dosage: 36 UNITS IN THE MORNING 24 UNITS AT BEDTIME
  12. LEFLUNOMIDE [Suspect]
     Dosage: 40 MG ONCE/DAY?
  13. MAGNESIUM OXIDE [Suspect]
     Dosage: 800 MG TWICE/DAY?
  14. METACLOPRAMIDE [Suspect]
     Dosage: 5 MG 3 TIMES/DAY?
  15. METOLAZONE [Suspect]
     Dosage: 2.5 MG ONCE/DAY?
  16. METOPROLOL TARTRATE [Suspect]
     Dosage: 50 MG TWICE/DAY?
  17. MYCOPHENOLATE [Suspect]
     Dosage: 1000 MG TWICE/DAY?
  18. PANTOPRAZOLE [Suspect]
     Dosage: 40 MG TWICE/DAY?
  19. PREDNISONE [Suspect]
     Dosage: 5 MG ONCE/DAY?
  20. WARFARIN [Suspect]
     Dosage: 5 MG ON TUESDAY, THURSDAY, AND SATURDAY; 2.5 ON MONDAY, WEDNESDAY, FRIDAY, AND SUNDAY?
  21. ALUMINUM HYDROXIDE-MAGNESIUM TRISILICATE [Suspect]
  22. DESIPRAMINE [Suspect]
     Dosage: 25 MG/DAY?
  23. AMANTADINE [Suspect]
     Dosage: 100 MG/DAY?
  24. PHENYTOIN [Suspect]
     Dosage: 200 MG/DAY?
  25. LORAZEPAM [Suspect]
     Dosage: 0.5 MG TWICE/DAY?
  26. OLANZAPINE [Suspect]
     Dosage: 2.5 MG/DAY?

REACTIONS (16)
  - Jaundice cholestatic [None]
  - Hiccups [None]
  - Disease recurrence [None]
  - Sleep disorder due to a general medical condition [None]
  - Impaired work ability [None]
  - Nausea [None]
  - Vomiting [None]
  - Heart rate decreased [None]
  - Atrial fibrillation [None]
  - Treatment failure [None]
  - Activities of daily living impaired [None]
  - No therapeutic response [None]
  - Dyskinesia [None]
  - Balance disorder [None]
  - Swollen tongue [None]
  - Extrapyramidal disorder [None]
